FAERS Safety Report 7685102-9 (Version None)
Quarter: 2011Q3

REPORT INFORMATION
  Report Type: 
  Country: None (occurrence: None)
  Receive Date: 20110811
  Receipt Date: 20110727
  Transmission Date: 20111222
  Serious: Yes (Other)
  Sender: FDA-Public Use
  Company Number: 2011AP000029

PATIENT
  Age: 60 Year
  Sex: Female

DRUGS (7)
  1. CORTICOSTEROIDS (CORTICOSTEROIDS) [Concomitant]
  2. ALENDRONATE SODIUM [Suspect]
     Indication: OSTEOPOROSIS PROPHYLAXIS
     Dosage: PO
     Route: 048
     Dates: start: 20091002, end: 20100908
  3. COLECALFIFEROL (COLECALFIFEROL) [Concomitant]
  4. COD LIVER OIL FORTIFIED TAB [Concomitant]
  5. RISEDRONATE SODIUM [Concomitant]
  6. CALCIUM CARBONATE [Concomitant]
  7. CALCIUM PHOSPHATE (CALCIUM PHOSPHATE) [Concomitant]

REACTIONS (1)
  - PAIN IN JAW [None]
